FAERS Safety Report 10371179 (Version 1)
Quarter: 2014Q3

REPORT INFORMATION
  Report Type: Spontaneous
  Country: US (occurrence: None)
  Receive Date: 20140806
  Receipt Date: 20140806
  Transmission Date: 20150326
  Serious: Yes (Other)
  Sender: FDA-Public Use
  Company Number: ADE14-027

PATIENT
  Age: 45 Year
  Sex: Female
  Weight: 48.54 kg

DRUGS (4)
  1. PROCHLORPERAZINE. [Concomitant]
     Active Substance: PROCHLORPERAZINE
  2. OCTREOTIDE ACETATE. [Suspect]
     Active Substance: OCTREOTIDE ACETATE
     Indication: CARCINOID TUMOUR
     Route: 042
     Dates: start: 20140603, end: 20140615
  3. LEVOTHYROXINE [Concomitant]
     Active Substance: LEVOTHYROXINE
  4. ONDANSETRON [Concomitant]
     Active Substance: ONDANSETRON

REACTIONS (9)
  - Fatigue [None]
  - Insomnia [None]
  - Nausea [None]
  - Apathy [None]
  - Diarrhoea [None]
  - Flushing [None]
  - Weight decreased [None]
  - Tinnitus [None]
  - Agitation [None]

NARRATIVE: CASE EVENT DATE: 20140615
